FAERS Safety Report 4293829-4 (Version None)
Quarter: 2004Q1

REPORT INFORMATION
  Report Type: 
  Country: None (occurrence: None)
  Receive Date: 20040210
  Receipt Date: 20040128
  Transmission Date: 20041129
  Serious: Yes (Hospitalization)
  Sender: FDA-Public Use
  Company Number: JP-JNJFOC-20040100631

PATIENT
  Age: 69 Year
  Sex: Female
  Weight: 53 kg

DRUGS (17)
  1. REMICADE [Suspect]
     Indication: RHEUMATOID ARTHRITIS
     Dosage: 3 MG/KG, 1 IN 1 AS NECESSARY, INTRAVENOUS DRIP
     Route: 041
     Dates: start: 20030821, end: 20030821
  2. REMICADE [Suspect]
     Indication: RHEUMATOID ARTHRITIS
     Dosage: 3 MG/KG, 1 IN 1 AS NECESSARY, INTRAVENOUS DRIP
     Route: 041
     Dates: start: 20030916, end: 20030916
  3. REMICADE [Suspect]
     Indication: RHEUMATOID ARTHRITIS
     Dosage: 3 MG/KG, 1 IN 1 AS NECESSARY, INTRAVENOUS DRIP
     Route: 041
     Dates: start: 20031001, end: 20031001
  4. REMICADE [Suspect]
     Indication: RHEUMATOID ARTHRITIS
     Dosage: 3 MG/KG, 1 IN 1 AS NECESSARY, INTRAVENOUS DRIP
     Route: 041
     Dates: start: 20031126, end: 20031126
  5. PREDNISOLONE [Suspect]
     Indication: RHEUMATOID ARTHRITIS
     Dosage: 20 MG, IN 1 DAY, ORAL; SEE IMAGE
     Route: 048
     Dates: start: 20030807, end: 20030821
  6. PREDNISOLONE [Suspect]
     Indication: RHEUMATOID ARTHRITIS
     Dosage: 20 MG, IN 1 DAY, ORAL; SEE IMAGE
     Route: 048
     Dates: start: 20030822, end: 20030910
  7. PREDNISOLONE [Suspect]
     Indication: RHEUMATOID ARTHRITIS
     Dosage: 20 MG, IN 1 DAY, ORAL; SEE IMAGE
     Route: 048
     Dates: start: 20030911, end: 20030924
  8. PREDNISOLONE [Suspect]
     Indication: RHEUMATOID ARTHRITIS
     Dosage: 20 MG, IN 1 DAY, ORAL; SEE IMAGE
     Route: 048
     Dates: start: 20030925
  9. RHEUMATREX [Suspect]
     Indication: RHEUMATOID ARTHRITIS
     Dosage: 6 MG, IN 1 WEEK, ORAL; SEE IMAGE
     Route: 048
     Dates: start: 20030807, end: 20040122
  10. RHEUMATREX [Suspect]
     Indication: RHEUMATOID ARTHRITIS
     Dosage: 6 MG, IN 1 WEEK, ORAL; SEE IMAGE
     Route: 048
     Dates: start: 20040123
  11. HYPEN (ETODOLAC) TABLETS [Concomitant]
  12. VOLTAREN (DICLOFENAC SODUIM) SUPPOSITORY [Concomitant]
  13. EPADEL (ETHYL ICOSAPENTATE) POWDER [Concomitant]
  14. REBAMIPIDE TABLETS [Concomitant]
  15. PROSTANDIN (ALPROSTADIL) [Concomitant]
  16. HEPARIN [Concomitant]
  17. PROSTAGLANDIN (DINOPROSTONE) [Concomitant]

REACTIONS (9)
  - ALANINE AMINOTRANSFERASE INCREASED [None]
  - ASPARTATE AMINOTRANSFERASE INCREASED [None]
  - BACILLUS INFECTION [None]
  - GAMMA-GLUTAMYLTRANSFERASE INCREASED [None]
  - LABORATORY TEST ABNORMAL [None]
  - LIVER DISORDER [None]
  - PNEUMONIA [None]
  - SINOBRONCHITIS [None]
  - TUBERCULOSIS [None]
